FAERS Safety Report 16099511 (Version 3)
Quarter: 2019Q3

REPORT INFORMATION
  Report Type: Spontaneous
  Country: US (occurrence: US)
  Receive Date: 20190321
  Receipt Date: 20190705
  Transmission Date: 20191004
  Serious: Yes (Other)
  Sender: FDA-Public Use
  Company Number: US-BAYER-2019-056257

PATIENT
  Age: 28 Year
  Sex: Female

DRUGS (6)
  1. CYCLOBENZAPRINE. [Concomitant]
     Active Substance: CYCLOBENZAPRINE
     Dosage: 5 MG, QD
     Dates: start: 20181113, end: 20190318
  2. DETROL LA [Concomitant]
     Active Substance: TOLTERODINE TARTRATE
     Dosage: 4 MG, QD
     Route: 048
  3. IBUPROFEN. [Concomitant]
     Active Substance: IBUPROFEN
     Dosage: UNK UNK, TID
     Route: 048
     Dates: start: 20181113, end: 20190318
  4. HYDROXYCHLOROQUINE [Concomitant]
     Active Substance: HYDROXYCHLOROQUINE
     Dosage: 200 MG, BID
     Route: 048
  5. MIRENA [Suspect]
     Active Substance: LEVONORGESTREL
     Indication: CONTRACEPTION
     Dosage: 20 MCG/24HR, CONT
     Route: 015
     Dates: start: 20140408
  6. MIRENA [Suspect]
     Active Substance: LEVONORGESTREL
     Indication: CONTRACEPTION

REACTIONS (13)
  - Complication of device removal [None]
  - Bronchitis [None]
  - Brachial plexus injury [None]
  - Embedded device [Recovered/Resolved with Sequelae]
  - Pyrexia [None]
  - Rheumatoid arthritis [None]
  - Nipple disorder [None]
  - Upper respiratory tract infection [None]
  - Menstruation irregular [None]
  - Device breakage [None]
  - Sexually transmitted disease [None]
  - Vaginal discharge [None]
  - Urinary incontinence [None]

NARRATIVE: CASE EVENT DATE: 20160725
